FAERS Safety Report 6021796-1 (Version None)
Quarter: 2008Q4

REPORT INFORMATION
  Report Type: 
  Country: None (occurrence: None)
  Receive Date: 20081229
  Receipt Date: 20081218
  Transmission Date: 20090506
  Serious: Yes (Other)
  Sender: FDA-Public Use
  Company Number: CH-WYE-H07420208

PATIENT
  Age: 75 Year
  Sex: Male

DRUGS (6)
  1. CORDARONE [Suspect]
     Route: 048
  2. ZOLPIDEM [Concomitant]
     Route: 048
  3. PRADIF [Concomitant]
     Route: 048
  4. LISINOPRIL [Concomitant]
     Route: 048
  5. ATORVASTATIN CALCIUM [Suspect]
     Dosage: UNKNOWN
     Route: 048
     Dates: end: 20080101
  6. CITALOPRAM [Concomitant]
     Route: 048

REACTIONS (2)
  - BLOOD CREATINE PHOSPHOKINASE INCREASED [None]
  - MYALGIA [None]
